FAERS Safety Report 22266170 (Version 1)
Quarter: 2023Q2

REPORT INFORMATION
  Report Type: Spontaneous
  Country: FR (occurrence: FR)
  Receive Date: 20230428
  Receipt Date: 20230428
  Transmission Date: 20230721
  Serious: Yes (Life-Threatening, Other)
  Sender: FDA-Public Use
  Company Number: None

PATIENT
  Age: 23 Year
  Sex: Male
  Weight: 71 kg

DRUGS (3)
  1. ETOPOSIDE [Suspect]
     Active Substance: ETOPOSIDE
     Indication: Testicular germ cell tumour
     Dosage: 3 CURES
     Route: 065
     Dates: start: 202201, end: 20220329
  2. CISPLATIN [Suspect]
     Active Substance: CISPLATIN
     Indication: Testicular germ cell tumour
     Dosage: 3 CURES
     Route: 065
     Dates: start: 202201, end: 20220329
  3. BLEOMYCIN SULFATE [Suspect]
     Active Substance: BLEOMYCIN SULFATE
     Indication: Testicular germ cell tumour
     Dosage: 3 CURES
     Route: 065
     Dates: start: 202201, end: 20220329

REACTIONS (1)
  - Systemic scleroderma [Not Recovered/Not Resolved]

NARRATIVE: CASE EVENT DATE: 20230101
